FAERS Safety Report 5337023-4 (Version None)
Quarter: 2007Q2

REPORT INFORMATION
  Report Type: 
  Country: None (occurrence: None)
  Receive Date: 20070529
  Receipt Date: 20070521
  Transmission Date: 20071010
  Serious: Yes (Other)
  Sender: FDA-Public Use
  Company Number: US-SANOFI-SYNTHELABO-A03200702275

PATIENT
  Age: 25 Year
  Sex: Male
  Weight: 63.5 kg

DRUGS (3)
  1. ZOLOFT [Concomitant]
     Dosage: UNK
     Route: 065
  2. AMBIEN [Suspect]
     Indication: INSOMNIA
     Route: 048
     Dates: start: 19980101, end: 20020101
  3. ADDERALL 10 [Concomitant]
     Dosage: UNK
     Route: 065

REACTIONS (8)
  - ABNORMAL BEHAVIOUR [None]
  - AMNESIA [None]
  - EATING DISORDER [None]
  - HALLUCINATION [None]
  - ROAD TRAFFIC ACCIDENT [None]
  - SKIN LACERATION [None]
  - SLEEP WALKING [None]
  - WEIGHT INCREASED [None]
